FAERS Safety Report 6816678-9 (Version None)
Quarter: 2010Q3

REPORT INFORMATION
  Report Type: 
  Country: None (occurrence: None)
  Receive Date: 20100706
  Receipt Date: 20100623
  Transmission Date: 20110219
  Serious: No
  Sender: FDA-Public Use
  Company Number: US-JNJFOC-20100607221

PATIENT
  Sex: Female
  Weight: 58.97 kg

DRUGS (13)
  1. FENTANYL [Suspect]
     Indication: BACK PAIN
     Route: 062
  2. VICODIN [Concomitant]
     Indication: PAIN
     Dosage: 5/500 MG
     Route: 048
  3. GABAPENTIN [Concomitant]
     Indication: PAIN
     Dosage: 100 MG/3 TABLETS AT BED TIME
     Route: 048
  4. FOSAMAX [Concomitant]
     Indication: BONE DISORDER
     Route: 048
  5. LAMOTRIGINE [Concomitant]
     Indication: DEPRESSION
     Dosage: 25 MG/ 2 TABLETS IN THE MORNING
     Route: 048
  6. RISPERDAL [Concomitant]
     Indication: AFFECTIVE DISORDER
     Route: 048
  7. CARBIDOPA [Concomitant]
     Indication: PARKINSON'S DISEASE
     Dosage: 100 /400 MG/TABLET/50/200/2 TABLETS (MORNING AND AT 4 PM), 50/200 MG AT NIGHT
  8. METHOTREXATE [Concomitant]
     Indication: RHEUMATOID ARTHRITIS
     Dosage: 2.5 MG/6 TABLETS
     Route: 048
  9. PREDNISONE TAB [Concomitant]
     Indication: RHEUMATOID ARTHRITIS
     Route: 048
  10. LEFLUNOMIDE [Concomitant]
     Indication: RHEUMATOID ARTHRITIS
     Route: 048
  11. LEVOTHYROXINE SODIUM [Concomitant]
     Indication: THYROID DISORDER
     Route: 048
  12. ASPIRIN [Concomitant]
     Indication: CARDIAC MURMUR
     Route: 048
  13. EXELON [Concomitant]
     Indication: PAIN
     Route: 062

REACTIONS (4)
  - DIZZINESS [None]
  - EXPIRED DRUG ADMINISTERED [None]
  - PRODUCT QUALITY ISSUE [None]
  - VOMITING [None]
